FAERS Safety Report 25939301 (Version 2)
Quarter: 2025Q4

REPORT INFORMATION
  Report Type: Spontaneous
  Country: US (occurrence: US)
  Receive Date: 20251020
  Receipt Date: 20251204
  Transmission Date: 20260118
  Serious: No
  Sender: SANDOZ
  Company Number: US-SANDOZ-SDZ2025US076225

PATIENT
  Sex: Female

DRUGS (1)
  1. ADALIMUMAB [Suspect]
     Active Substance: ADALIMUMAB
     Indication: Product used for unknown indication
     Dosage: Q2W, ADALIMUMAB-ADAZ, 40MG/0.4ML IN PREFILLED SYRINGE
     Route: 058

REACTIONS (3)
  - Device use issue [Unknown]
  - Circumstance or information capable of leading to device use error [Unknown]
  - Device mechanical issue [Unknown]
